FAERS Safety Report 4680124-4 (Version None)
Quarter: 2005Q2

REPORT INFORMATION
  Report Type: 
  Country: None (occurrence: None)
  Receive Date: 20050531
  Receipt Date: 20050520
  Transmission Date: 20051028
  Serious: Yes (Hospitalization)
  Sender: FDA-Public Use
  Company Number: 2005-05-1532

PATIENT
  Age: 62 Year
  Sex: Female

DRUGS (2)
  1. PEG-INTRON [Suspect]
     Indication: HEPATITIS C
     Dosage: 50 MCG QW SUBCUTANEOUS
     Route: 058
     Dates: start: 20050118, end: 20050319
  2. REBETOL [Suspect]
     Indication: HEPATITIS C
     Dosage: 400 MG ORAL
     Route: 048
     Dates: start: 20050118, end: 20050402

REACTIONS (2)
  - HEPATIC NEOPLASM MALIGNANT [None]
  - LIVER TRANSPLANT [None]
